FAERS Safety Report 12389171 (Version 2)
Quarter: 2016Q3

REPORT INFORMATION
  Report Type: Spontaneous
  Country: BR (occurrence: BR)
  Receive Date: 20160520
  Receipt Date: 20160811
  Transmission Date: 20161109
  Serious: Yes (Other)
  Sender: FDA-Public Use
  Company Number: BR-PFIZER INC-2016164508

PATIENT
  Age: 58 Year
  Sex: Male
  Weight: 65 kg

DRUGS (2)
  1. SUTENT [Suspect]
     Active Substance: SUNITINIB MALATE
     Indication: METASTATIC RENAL CELL CARCINOMA
     Dosage: 50 MG IN THE MORNING, CYCLIC 4X2
     Route: 048
     Dates: start: 20160310
  2. LOSARTAN. [Concomitant]
     Active Substance: LOSARTAN
     Indication: HYPERTENSION
     Dosage: 50 MG 1 TABLET 1X DAILY

REACTIONS (8)
  - Syncope [Unknown]
  - Disease progression [Not Recovered/Not Resolved]
  - Abasia [Not Recovered/Not Resolved]
  - Dysstasia [Unknown]
  - Metastatic renal cell carcinoma [Not Recovered/Not Resolved]
  - Asthenia [Not Recovered/Not Resolved]
  - Feeling abnormal [Not Recovered/Not Resolved]
  - Anaemia [Unknown]

NARRATIVE: CASE EVENT DATE: 2016
